FAERS Safety Report 11534442 (Version 3)
Quarter: 2015Q4

REPORT INFORMATION
  Report Type: Report from Study
  Country: BR (occurrence: BR)
  Receive Date: 20150922
  Receipt Date: 20151012
  Transmission Date: 20160304
  Serious: Yes (Other)
  Sender: FDA-Public Use
  Company Number: PHHY2015BR113699

PATIENT
  Sex: Male
  Weight: 70 kg

DRUGS (1)
  1. FORASEQ [Suspect]
     Active Substance: BUDESONIDE\FORMOTEROL FUMARATE
     Indication: ASTHMA
     Dosage: 2 DF, QD (FORMOTEROL FUMARATE 12 MCG, BUDESONIDE 400 MCG), 2 TB PER DAY (CLARIFIED,1 TB OF EACH)
     Route: 055

REACTIONS (1)
  - Cataract [Not Recovered/Not Resolved]
